FAERS Safety Report 19419953 (Version 4)
Quarter: 2024Q2

REPORT INFORMATION
  Report Type: Spontaneous
  Country: US (occurrence: US)
  Receive Date: 20210616
  Receipt Date: 20240424
  Transmission Date: 20240716
  Serious: No
  Sender: FDA-Public Use
  Company Number: US-VIIV HEALTHCARE LIMITED-63835

PATIENT
  Age: 26 Year
  Sex: Male

DRUGS (4)
  1. CABENUVA [Suspect]
     Active Substance: CABOTEGRAVIR\RILPIVIRINE
     Indication: HIV infection
     Dosage: 3 ML (600MG-900MG/3ML)
     Route: 030
     Dates: start: 20210608
  2. CABENUVA [Suspect]
     Active Substance: CABOTEGRAVIR\RILPIVIRINE
  3. CABENUVA [Suspect]
     Active Substance: CABOTEGRAVIR\RILPIVIRINE
  4. DOVATO [Concomitant]
     Active Substance: DOLUTEGRAVIR SODIUM\LAMIVUDINE
     Indication: HIV infection
     Dosage: UNK
     Route: 048
     Dates: start: 2016

REACTIONS (17)
  - Injection site pain [Unknown]
  - Hypersensitivity [Unknown]
  - Dizziness [Unknown]
  - Pain [Unknown]
  - Arthralgia [Unknown]
  - Contusion [Unknown]
  - Injection site mass [Unknown]
  - Headache [Unknown]
  - Fatigue [Unknown]
  - Eye pruritus [Unknown]
  - Eye swelling [Unknown]
  - Ocular hyperaemia [Unknown]
  - Malaise [Unknown]
  - Myalgia [Unknown]
  - Confusional state [Unknown]
  - Clumsiness [Unknown]
  - Condition aggravated [Unknown]

NARRATIVE: CASE EVENT DATE: 20210601
